FAERS Safety Report 4323214-8 (Version None)
Quarter: 2004Q1

REPORT INFORMATION
  Report Type: 
  Country: None (occurrence: None)
  Receive Date: 20040324
  Receipt Date: 20040324
  Transmission Date: 20041129
  Serious: Yes (Death)
  Sender: FDA-Public Use
  Company Number: None

PATIENT
  Sex: Female
  Weight: 63.9572 kg

DRUGS (15)
  1. ARSENIC TRIOXIDE 16 MG [Suspect]
     Indication: MYELODYSPLASTIC SYNDROME
     Dosage: 16 MG DAILY INTRAVENOUS
     Route: 042
     Dates: start: 20040308, end: 20040311
  2. EPOGEN [Concomitant]
  3. REGULAR INSULIN [Concomitant]
  4. AMINOCAPROIC ACID [Concomitant]
  5. COENZYME Q10 [Concomitant]
  6. METFORMIN HCL [Concomitant]
  7. PYRIDOXINE [Concomitant]
  8. FELODIPINE SA [Concomitant]
  9. IRBESARTAN [Concomitant]
  10. FERROUS SULFTE [Concomitant]
  11. FLUOXETINE [Concomitant]
  12. MIRTAZAPINE [Concomitant]
  13. OCTREOTIDE ACETATE [Concomitant]
  14. ONDANSETRON HCL [Concomitant]
  15. HYDROCORTISONE [Concomitant]

REACTIONS (4)
  - ABDOMINAL PAIN [None]
  - GASTROINTESTINAL HAEMORRHAGE [None]
  - VAGINAL HAEMORRHAGE [None]
  - VOMITING [None]
